FAERS Safety Report 24966147 (Version 2)
Quarter: 2025Q1

REPORT INFORMATION
  Report Type: Spontaneous
  Country: PE (occurrence: PE)
  Receive Date: 20250213
  Receipt Date: 20250305
  Transmission Date: 20250409
  Serious: Yes (Other)
  Sender: BAYER HEALTHCARE PHARMACEUTICALS INC.
  Company Number: PE-BAYER-2025A017852

PATIENT
  Age: 44 Year
  Sex: Female

DRUGS (2)
  1. ULTRAVIST [Suspect]
     Active Substance: IOPROMIDE
     Indication: Scan with contrast
     Route: 042
     Dates: start: 20250128, end: 20250128
  2. ULTRAVIST [Suspect]
     Active Substance: IOPROMIDE
     Indication: Constipation

REACTIONS (4)
  - Rash [Unknown]
  - Erythema [Unknown]
  - Pelvic pain [Unknown]
  - Skin discolouration [Unknown]

NARRATIVE: CASE EVENT DATE: 20250128
